FAERS Safety Report 14447979 (Version 1)
Quarter: 2018Q1

REPORT INFORMATION
  Report Type: Spontaneous
  Country: FR (occurrence: FR)
  Receive Date: 20180126
  Receipt Date: 20180126
  Transmission Date: 20180509
  Serious: Yes (Hospitalization)
  Sender: FDA-Public Use
  Company Number: FR-SHIRE-2016BLT001655

PATIENT
  Age: 1 Year
  Sex: Female

DRUGS (3)
  1. ONCASPAR [Suspect]
     Active Substance: PEGASPARGASE
     Dosage: UNK
     Route: 065
     Dates: start: 20150827, end: 20150827
  2. ONCASPAR [Suspect]
     Active Substance: PEGASPARGASE
     Dosage: 1200 IU, UNK
     Route: 065
     Dates: start: 20150805, end: 20150805
  3. ONCASPAR [Suspect]
     Active Substance: PEGASPARGASE
     Indication: ACUTE LYMPHOCYTIC LEUKAEMIA
     Dosage: 1300 IU, UNK, 2500 IU/M2
     Route: 042
     Dates: start: 20150828, end: 20150828

REACTIONS (2)
  - Rash [Recovered/Resolved]
  - Dyspnoea [Recovered/Resolved]

NARRATIVE: CASE EVENT DATE: 20150828
